FAERS Safety Report 9613196 (Version 3)
Quarter: 2013Q4

REPORT INFORMATION
  Report Type: Spontaneous
  Country: US (occurrence: US)
  Receive Date: 20131010
  Receipt Date: 20131202
  Transmission Date: 20140711
  Serious: No
  Sender: FDA-Public Use
  Company Number: US-009507513-1310USA004240

PATIENT
  Age: 54 Year
  Sex: Male
  Weight: 77.98 kg

DRUGS (5)
  1. VICTRELIS [Suspect]
     Dosage: 800 MG, TID, (EVERY 7-9 HOURS)
     Route: 048
  2. PEGASYS [Suspect]
     Dosage: UNK
  3. RIBAPAK [Suspect]
     Dosage: 1000/DAY
  4. ASPIRIN [Concomitant]
     Route: 048
  5. CENTRUM (MINERALS (UNSPECIFIED) (+) VITAMINS (UNSPECIFIED)) [Concomitant]

REACTIONS (3)
  - Anxiety [Unknown]
  - Dyspnoea [Recovered/Resolved]
  - Fatigue [Unknown]
